FAERS Safety Report 4693762-X (Version None)
Quarter: 2005Q2

REPORT INFORMATION
  Report Type: 
  Country: None (occurrence: None)
  Receive Date: 20050616
  Receipt Date: 20050606
  Transmission Date: 20051028
  Serious: Yes (Hospitalization)
  Sender: FDA-Public Use
  Company Number: SP-2005-002190

PATIENT
  Age: 74 Year
  Sex: Female

DRUGS (5)
  1. ALTEIS [Suspect]
     Indication: ESSENTIAL HYPERTENSION
     Dosage: 20 MG QD PO
     Route: 048
     Dates: end: 20050414
  2. FLUDEX [Suspect]
     Indication: ESSENTIAL HYPERTENSION
     Dosage: 1.5 MG PO
     Route: 048
     Dates: end: 20050414
  3. TEMESTA [Concomitant]
  4. ZOCOR [Concomitant]
  5. NORSET [Suspect]
     Indication: DEPRESSION
     Dosage: 60 MG PO
     Route: 048
     Dates: start: 20041124, end: 20050414

REACTIONS (4)
  - ABDOMINAL PAIN [None]
  - BLOOD SODIUM DECREASED [None]
  - CONSTIPATION [None]
  - SYNCOPE VASOVAGAL [None]
